FAERS Safety Report 23420682 (Version 8)
Quarter: 2025Q1

REPORT INFORMATION
  Report Type: Spontaneous
  Country: CA (occurrence: CA)
  Receive Date: 20240119
  Receipt Date: 20250113
  Transmission Date: 20250408
  Serious: Yes (Death, Life-Threatening, Hospitalization, Disabling, Congenital Anomaly, Other)
  Sender: SANDOZ
  Company Number: CA-002147023-NVSC2024CA009139

PATIENT
  Age: 40 Year
  Sex: Female
  Weight: 96 kg

DRUGS (307)
  1. ADALIMUMAB [Suspect]
     Active Substance: ADALIMUMAB
     Indication: Rheumatoid arthritis
     Route: 065
  2. ADALIMUMAB [Suspect]
     Active Substance: ADALIMUMAB
     Route: 058
  3. ALENDRONATE SODIUM [Suspect]
     Active Substance: ALENDRONATE SODIUM
     Indication: Rheumatoid arthritis
     Route: 048
  4. ALENDRONATE SODIUM [Suspect]
     Active Substance: ALENDRONATE SODIUM
     Route: 065
  5. APREMILAST [Suspect]
     Active Substance: APREMILAST
     Indication: Rheumatoid arthritis
     Dosage: 6 MG, QD
     Route: 065
  6. ATOMOXETINE HYDROCHLORIDE [Suspect]
     Active Substance: ATOMOXETINE HYDROCHLORIDE
     Indication: Migraine
     Route: 065
  7. ACETAMINOPHEN [Suspect]
     Active Substance: ACETAMINOPHEN
     Indication: Rheumatoid arthritis
     Route: 065
  8. ACETAMINOPHEN [Suspect]
     Active Substance: ACETAMINOPHEN
     Route: 065
  9. ACETAMINOPHEN [Suspect]
     Active Substance: ACETAMINOPHEN
     Route: 065
  10. ACETAMINOPHEN\CODEINE PHOSPHATE [Suspect]
     Active Substance: ACETAMINOPHEN\CODEINE PHOSPHATE
     Indication: Product used for unknown indication
     Route: 065
  11. ACTEMRA [Suspect]
     Active Substance: TOCILIZUMAB
     Route: 058
  12. ACTEMRA [Suspect]
     Active Substance: TOCILIZUMAB
     Route: 042
  13. ACTEMRA [Suspect]
     Active Substance: TOCILIZUMAB
     Dosage: 25 MG, QW
     Route: 058
  14. ACTEMRA [Suspect]
     Active Substance: TOCILIZUMAB
     Route: 042
  15. ACTEMRA [Suspect]
     Active Substance: TOCILIZUMAB
     Indication: Rheumatoid arthritis
     Route: 042
  16. ACTEMRA [Suspect]
     Active Substance: TOCILIZUMAB
     Route: 042
  17. ACTEMRA [Suspect]
     Active Substance: TOCILIZUMAB
     Route: 042
  18. ACTEMRA [Suspect]
     Active Substance: TOCILIZUMAB
     Route: 042
  19. ACTEMRA [Suspect]
     Active Substance: TOCILIZUMAB
     Route: 065
  20. ACTEMRA [Suspect]
     Active Substance: TOCILIZUMAB
     Indication: Abdominal discomfort
     Route: 042
  21. ACTEMRA [Suspect]
     Active Substance: TOCILIZUMAB
     Route: 058
  22. ACTEMRA [Suspect]
     Active Substance: TOCILIZUMAB
     Route: 065
  23. AIMOVIG [Suspect]
     Active Substance: ERENUMAB-AOOE
     Indication: Migraine
     Route: 065
  24. ALENDRONATE SODIUM\CHOLECALCIFEROL [Suspect]
     Active Substance: ALENDRONATE SODIUM\CHOLECALCIFEROL
     Indication: Rheumatoid arthritis
     Route: 065
  25. ALENDRONIC ACID [Suspect]
     Active Substance: ALENDRONIC ACID
     Route: 005
  26. ALENDRONIC ACID [Suspect]
     Active Substance: ALENDRONIC ACID
     Route: 016
  27. ALENDRONIC ACID [Suspect]
     Active Substance: ALENDRONIC ACID
     Route: 048
  28. ALENDRONIC ACID [Suspect]
     Active Substance: ALENDRONIC ACID
     Route: 048
  29. ALENDRONIC ACID [Suspect]
     Active Substance: ALENDRONIC ACID
     Indication: Rheumatoid arthritis
     Route: 065
  30. ALENDRONIC ACID [Suspect]
     Active Substance: ALENDRONIC ACID
     Route: 065
  31. ALENDRONIC ACID [Suspect]
     Active Substance: ALENDRONIC ACID
     Route: 065
  32. ALENDRONIC ACID [Suspect]
     Active Substance: ALENDRONIC ACID
     Route: 065
  33. ALENDRONIC ACID [Suspect]
     Active Substance: ALENDRONIC ACID
     Route: 065
  34. ALENDRONIC ACID [Suspect]
     Active Substance: ALENDRONIC ACID
     Route: 065
  35. ALENDRONIC ACID [Suspect]
     Active Substance: ALENDRONIC ACID
     Route: 065
  36. TRAMADOL HYDROCHLORIDE [Suspect]
     Active Substance: TRAMADOL HYDROCHLORIDE
     Indication: Product used for unknown indication
     Route: 065
  37. ATOMOXETINE HYDROCHLORIDE [Suspect]
     Active Substance: ATOMOXETINE HYDROCHLORIDE
     Indication: Product used for unknown indication
     Route: 065
  38. DICLOFENAC POTASSIUM [Suspect]
     Active Substance: DICLOFENAC POTASSIUM
     Indication: Product used for unknown indication
     Route: 065
  39. LEFLUNOMIDE [Suspect]
     Active Substance: LEFLUNOMIDE
     Dosage: 10 MG, QD
     Route: 048
  40. LEFLUNOMIDE [Suspect]
     Active Substance: LEFLUNOMIDE
     Dosage: 10 MG, Q24H
     Route: 065
  41. LEFLUNOMIDE [Suspect]
     Active Substance: LEFLUNOMIDE
     Route: 048
  42. LEFLUNOMIDE [Suspect]
     Active Substance: LEFLUNOMIDE
     Route: 065
  43. LEFLUNOMIDE [Suspect]
     Active Substance: LEFLUNOMIDE
     Route: 065
  44. LEFLUNOMIDE [Suspect]
     Active Substance: LEFLUNOMIDE
     Dosage: 20 MG, Q24H
     Route: 065
  45. LEFLUNOMIDE [Suspect]
     Active Substance: LEFLUNOMIDE
     Indication: Rheumatoid arthritis
     Route: 065
  46. LEFLUNOMIDE [Suspect]
     Active Substance: LEFLUNOMIDE
     Route: 048
  47. PREDNISONE [Suspect]
     Active Substance: PREDNISONE
     Route: 065
  48. PREDNISONE [Suspect]
     Active Substance: PREDNISONE
     Route: 065
  49. PREDNISONE [Suspect]
     Active Substance: PREDNISONE
     Dosage: 20 MG, Q24H
     Route: 048
  50. PREDNISONE [Suspect]
     Active Substance: PREDNISONE
     Route: 065
  51. PREDNISONE [Suspect]
     Active Substance: PREDNISONE
     Route: 048
  52. PREDNISONE [Suspect]
     Active Substance: PREDNISONE
     Indication: Rheumatoid arthritis
     Route: 065
  53. PREDNISONE [Suspect]
     Active Substance: PREDNISONE
     Dosage: 50 MG, QD
     Route: 048
  54. PREDNISONE [Suspect]
     Active Substance: PREDNISONE
     Dosage: UNK, Q24H
     Route: 048
  55. PREDNISONE [Suspect]
     Active Substance: PREDNISONE
     Route: 048
  56. PREDNISONE [Suspect]
     Active Substance: PREDNISONE
     Route: 065
  57. APREMILAST [Suspect]
     Active Substance: APREMILAST
     Indication: Product used for unknown indication
     Route: 065
  58. ARAVA [Suspect]
     Active Substance: LEFLUNOMIDE
     Dosage: 20 MG, QD
     Route: 048
  59. ARAVA [Suspect]
     Active Substance: LEFLUNOMIDE
     Route: 048
  60. ARAVA [Suspect]
     Active Substance: LEFLUNOMIDE
     Indication: Rheumatoid arthritis
     Route: 048
  61. BERINERT [Suspect]
     Active Substance: HUMAN C1-ESTERASE INHIBITOR
     Indication: Product used for unknown indication
     Route: 065
  62. BOTULINUM TOXIN TYPE A [Suspect]
     Active Substance: BOTULINUM TOXIN TYPE A
     Indication: Product used for unknown indication
     Route: 065
  63. BUTRANS [Suspect]
     Active Substance: BUPRENORPHINE
     Indication: Product used for unknown indication
     Route: 065
  64. CANDESARTAN [Suspect]
     Active Substance: CANDESARTAN
     Indication: Migraine
     Route: 048
  65. CELECOXIB [Suspect]
     Active Substance: CELECOXIB
     Indication: Product used for unknown indication
     Dosage: 1 DF, Q24H
     Route: 065
  66. CELECOXIB [Suspect]
     Active Substance: CELECOXIB
     Dosage: 2 DF, Q24H
     Route: 048
  67. CALCIUM ASCORBATE [Suspect]
     Active Substance: CALCIUM ASCORBATE
     Indication: Product used for unknown indication
     Route: 065
  68. CALCIUM ASCORBATE [Suspect]
     Active Substance: CALCIUM ASCORBATE
     Route: 065
  69. CALCIUM ASCORBATE [Suspect]
     Active Substance: CALCIUM ASCORBATE
     Route: 065
  70. CALCIUM CARBONATE [Suspect]
     Active Substance: CALCIUM CARBONATE
     Indication: Product used for unknown indication
     Route: 065
  71. CALCIUM GLUBIONATE [Suspect]
     Active Substance: CALCIUM GLUBIONATE
     Indication: Product used for unknown indication
     Route: 065
  72. CERTOLIZUMAB PEGOL [Suspect]
     Active Substance: CERTOLIZUMAB PEGOL
     Indication: Product used for unknown indication
     Route: 058
  73. CETIRIZINE [Suspect]
     Active Substance: CETIRIZINE HYDROCHLORIDE
     Indication: Rheumatoid arthritis
     Route: 048
  74. CETIRIZINE [Suspect]
     Active Substance: CETIRIZINE HYDROCHLORIDE
     Route: 065
  75. CETIRIZINE [Suspect]
     Active Substance: CETIRIZINE HYDROCHLORIDE
     Route: 048
  76. CETIRIZINE HYDROCHLORIDE [Suspect]
     Active Substance: CETIRIZINE HYDROCHLORIDE
     Indication: Rheumatoid arthritis
     Route: 065
  77. CETIRIZINE HYDROCHLORIDE [Suspect]
     Active Substance: CETIRIZINE HYDROCHLORIDE
     Route: 065
  78. CETIRIZINE HYDROCHLORIDE [Suspect]
     Active Substance: CETIRIZINE HYDROCHLORIDE
     Route: 048
  79. CETIRIZINE HYDROCHLORIDE [Suspect]
     Active Substance: CETIRIZINE HYDROCHLORIDE
     Route: 065
  80. CETIRIZINE HYDROCHLORIDE [Suspect]
     Active Substance: CETIRIZINE HYDROCHLORIDE
     Route: 065
  81. CETIRIZINE HYDROCHLORIDE [Suspect]
     Active Substance: CETIRIZINE HYDROCHLORIDE
     Route: 065
  82. CHLORHEXIDINE GLUCONATE [Suspect]
     Active Substance: CHLORHEXIDINE GLUCONATE
     Indication: Product used for unknown indication
     Route: 065
  83. CIMZIA [Suspect]
     Active Substance: CERTOLIZUMAB PEGOL
     Route: 058
  84. CIMZIA [Suspect]
     Active Substance: CERTOLIZUMAB PEGOL
     Indication: Rheumatoid arthritis
     Route: 058
  85. CIMZIA [Suspect]
     Active Substance: CERTOLIZUMAB PEGOL
     Indication: Psoriasis
     Route: 058
  86. CORTISONE [Suspect]
     Active Substance: CORTISONE
     Indication: Rheumatoid arthritis
     Route: 058
  87. CORTISONE ACETATE [Suspect]
     Active Substance: CORTISONE ACETATE
     Indication: Rheumatoid arthritis
     Route: 061
  88. CORTISONE ACETATE [Suspect]
     Active Substance: CORTISONE ACETATE
     Route: 065
  89. COSENTYX [Suspect]
     Active Substance: SECUKINUMAB
     Indication: Psoriatic arthropathy
     Route: 065
  90. DICLOFENAC POTASSIUM [Suspect]
     Active Substance: DICLOFENAC POTASSIUM
     Indication: Product used for unknown indication
     Route: 065
  91. DICLOFENAC SODIUM [Suspect]
     Active Substance: DICLOFENAC SODIUM
     Indication: Product used for unknown indication
     Route: 058
  92. DICLOFENAC SODIUM [Suspect]
     Active Substance: DICLOFENAC SODIUM
     Route: 065
  93. DICLOFENAC SODIUM [Suspect]
     Active Substance: DICLOFENAC SODIUM
     Route: 058
  94. DICLOFENAC SODIUM [Suspect]
     Active Substance: DICLOFENAC SODIUM
     Route: 065
  95. DESOXIMETASONE [Suspect]
     Active Substance: DESOXIMETASONE
     Route: 048
  96. DESOXIMETASONE [Suspect]
     Active Substance: DESOXIMETASONE
     Route: 048
  97. DESOXIMETASONE [Suspect]
     Active Substance: DESOXIMETASONE
     Indication: Rheumatoid arthritis
     Route: 065
  98. DESOXIMETASONE [Suspect]
     Active Substance: DESOXIMETASONE
     Route: 048
  99. DESOXIMETASONE [Suspect]
     Active Substance: DESOXIMETASONE
     Route: 048
  100. DESOXIMETASONE [Suspect]
     Active Substance: DESOXIMETASONE
     Route: 058
  101. DESOXIMETASONE [Suspect]
     Active Substance: DESOXIMETASONE
     Route: 065
  102. DICLOFENAC DIETHYLAMINE [Suspect]
     Active Substance: DICLOFENAC DIETHYLAMINE
     Indication: Product used for unknown indication
     Route: 065
  103. DOMPERIDONE MALEATE [Suspect]
     Active Substance: DOMPERIDONE MALEATE
     Indication: Product used for unknown indication
     Route: 065
  104. ERELZI [Suspect]
     Active Substance: ETANERCEPT-SZZS
     Indication: Rheumatoid arthritis
     Route: 058
  105. ERGOCALCIFEROL [Suspect]
     Active Substance: ERGOCALCIFEROL
     Indication: Product used for unknown indication
     Route: 065
  106. ENBREL [Suspect]
     Active Substance: ETANERCEPT
     Dosage: 10 MG, QW
     Route: 065
  107. ENBREL [Suspect]
     Active Substance: ETANERCEPT
     Route: 058
  108. ENBREL [Suspect]
     Active Substance: ETANERCEPT
     Dosage: 50 MG, QW
     Route: 058
  109. ENBREL [Suspect]
     Active Substance: ETANERCEPT
     Route: 058
  110. ENBREL [Suspect]
     Active Substance: ETANERCEPT
     Route: 065
  111. ENBREL [Suspect]
     Active Substance: ETANERCEPT
     Indication: Rheumatoid arthritis
     Route: 058
  112. ERENUMAB [Suspect]
     Active Substance: ERENUMAB
     Indication: Migraine
     Route: 065
  113. ERENUMAB [Suspect]
     Active Substance: ERENUMAB
     Route: 065
  114. ERENUMAB-AOOE [Suspect]
     Active Substance: ERENUMAB-AOOE
     Indication: Migraine
     Route: 065
  115. FOLIC ACID [Suspect]
     Active Substance: FOLIC ACID
     Route: 048
  116. FOLIC ACID [Suspect]
     Active Substance: FOLIC ACID
     Route: 065
  117. FOLIC ACID [Suspect]
     Active Substance: FOLIC ACID
     Route: 048
  118. FOLIC ACID [Suspect]
     Active Substance: FOLIC ACID
     Indication: Rheumatoid arthritis
     Route: 048
  119. FOLIC ACID [Suspect]
     Active Substance: FOLIC ACID
     Route: 065
  120. FOLIC ACID [Suspect]
     Active Substance: FOLIC ACID
     Route: 048
  121. FLUMETHASONE [Suspect]
     Active Substance: FLUMETHASONE
     Indication: Product used for unknown indication
     Route: 065
  122. FLUMETHASONE PIVALATE [Suspect]
     Active Substance: FLUMETHASONE PIVALATE
     Route: 003
  123. FLUMETHASONE PIVALATE [Suspect]
     Active Substance: FLUMETHASONE PIVALATE
     Indication: Product used for unknown indication
     Route: 065
  124. FOSAMAX [Suspect]
     Active Substance: ALENDRONATE SODIUM
     Route: 048
  125. FOSAMAX [Suspect]
     Active Substance: ALENDRONATE SODIUM
     Indication: Rheumatoid arthritis
     Route: 058
  126. GOLD [Suspect]
     Active Substance: GOLD
     Indication: Product used for unknown indication
     Route: 065
  127. GOLD SODIUM THIOMALATE [Suspect]
     Active Substance: GOLD SODIUM THIOMALATE
     Indication: Product used for unknown indication
     Route: 065
  128. GOLIMUMAB [Suspect]
     Active Substance: GOLIMUMAB
     Indication: Rheumatoid arthritis
     Route: 058
  129. GOLIMUMAB [Suspect]
     Active Substance: GOLIMUMAB
     Indication: Prostatic specific antigen
     Route: 065
  130. HUMIRA [Suspect]
     Active Substance: ADALIMUMAB
     Route: 058
  131. HUMIRA [Suspect]
     Active Substance: ADALIMUMAB
     Route: 057
  132. HUMIRA [Suspect]
     Active Substance: ADALIMUMAB
     Indication: Rheumatoid arthritis
     Route: 058
  133. HYDROXYCHLOROQUINE [Suspect]
     Active Substance: HYDROXYCHLOROQUINE
     Route: 065
  134. HYDROXYCHLOROQUINE [Suspect]
     Active Substance: HYDROXYCHLOROQUINE
     Dosage: 40 MG, QD
     Route: 065
  135. HYDROXYCHLOROQUINE [Suspect]
     Active Substance: HYDROXYCHLOROQUINE
     Route: 065
  136. HYDROXYCHLOROQUINE [Suspect]
     Active Substance: HYDROXYCHLOROQUINE
     Dosage: 400 MG, Q24H
     Route: 048
  137. HYDROXYCHLOROQUINE [Suspect]
     Active Substance: HYDROXYCHLOROQUINE
     Indication: Rheumatoid arthritis
     Route: 048
  138. HYDROXYCHLOROQUINE [Suspect]
     Active Substance: HYDROXYCHLOROQUINE
     Route: 048
  139. HYDROXYCHLOROQUINE [Suspect]
     Active Substance: HYDROXYCHLOROQUINE
     Route: 058
  140. HYDROXYCHLOROQUINE [Suspect]
     Active Substance: HYDROXYCHLOROQUINE
     Route: 065
  141. IMURAN [Suspect]
     Active Substance: AZATHIOPRINE
     Indication: Product used for unknown indication
     Route: 065
  142. INFLIXIMAB [Suspect]
     Active Substance: INFLIXIMAB
     Indication: Rheumatoid arthritis
     Route: 042
  143. ISOPROPYL ALCOHOL [Suspect]
     Active Substance: ISOPROPYL ALCOHOL
     Indication: Product used for unknown indication
     Route: 061
  144. KEVZARA [Suspect]
     Active Substance: SARILUMAB
     Indication: Product used for unknown indication
     Route: 065
  145. LAMICTAL [Suspect]
     Active Substance: LAMOTRIGINE
     Indication: Product used for unknown indication
     Route: 048
  146. LAMICTAL [Suspect]
     Active Substance: LAMOTRIGINE
     Route: 048
  147. METHOTREXATE [Suspect]
     Active Substance: METHOTREXATE
     Route: 048
  148. METHOTREXATE [Suspect]
     Active Substance: METHOTREXATE
     Route: 065
  149. METHOTREXATE [Suspect]
     Active Substance: METHOTREXATE
     Dosage: 20 MG, QD
     Route: 048
  150. METHOTREXATE [Suspect]
     Active Substance: METHOTREXATE
     Indication: Rheumatoid arthritis
     Dosage: 25 MG, QW
     Route: 048
  151. METHOTREXATE [Suspect]
     Active Substance: METHOTREXATE
     Dosage: 25 MG, QW
     Route: 065
  152. METHOTREXATE [Suspect]
     Active Substance: METHOTREXATE
     Dosage: 50 MG, QD
     Route: 048
  153. METHOTREXATE [Suspect]
     Active Substance: METHOTREXATE
     Route: 048
  154. METHOTREXATE [Suspect]
     Active Substance: METHOTREXATE
     Route: 058
  155. MAGNESIUM CITRATE [Suspect]
     Active Substance: MAGNESIUM CITRATE
     Indication: Product used for unknown indication
     Route: 065
  156. MEGLUMINE [Suspect]
     Active Substance: MEGLUMINE
     Indication: Product used for unknown indication
     Route: 040
  157. METFORMIN HYDROCHLORIDE [Suspect]
     Active Substance: METFORMIN HYDROCHLORIDE
     Indication: Product used for unknown indication
     Route: 040
  158. METHYLPREDNISOLONE [Suspect]
     Active Substance: METHYLPREDNISOLONE
     Route: 041
  159. METHYLPREDNISOLONE [Suspect]
     Active Substance: METHYLPREDNISOLONE
     Route: 041
  160. METHYLPREDNISOLONE [Suspect]
     Active Substance: METHYLPREDNISOLONE
     Route: 041
  161. METHYLPREDNISOLONE [Suspect]
     Active Substance: METHYLPREDNISOLONE
     Dosage: UNK, QD
     Route: 041
  162. METHYLPREDNISOLONE [Suspect]
     Active Substance: METHYLPREDNISOLONE
     Route: 041
  163. METHYLPREDNISOLONE [Suspect]
     Active Substance: METHYLPREDNISOLONE
     Indication: Rheumatoid arthritis
     Route: 059
  164. METHYLPREDNISOLONE [Suspect]
     Active Substance: METHYLPREDNISOLONE
     Route: 059
  165. METHYLPREDNISOLONE [Suspect]
     Active Substance: METHYLPREDNISOLONE
     Route: 065
  166. METHYLPREDNISOLONE SODIUM SUCCINATE [Suspect]
     Active Substance: METHYLPREDNISOLONE SODIUM SUCCINATE
     Route: 065
  167. METHYLPREDNISOLONE SODIUM SUCCINATE [Suspect]
     Active Substance: METHYLPREDNISOLONE SODIUM SUCCINATE
     Indication: Product used for unknown indication
     Route: 065
  168. MINOCYCLINE [Suspect]
     Active Substance: MINOCYCLINE HYDROCHLORIDE
     Indication: Product used for unknown indication
     Route: 065
  169. MINOCYCLINE [Suspect]
     Active Substance: MINOCYCLINE HYDROCHLORIDE
     Indication: Rheumatoid arthritis
     Route: 065
  170. MINOCYCLINE HYDROCHLORIDE [Suspect]
     Active Substance: MINOCYCLINE HYDROCHLORIDE
     Route: 065
  171. MINOCYCLINE HYDROCHLORIDE [Suspect]
     Active Substance: MINOCYCLINE HYDROCHLORIDE
     Route: 065
  172. MINOCYCLINE HYDROCHLORIDE [Suspect]
     Active Substance: MINOCYCLINE HYDROCHLORIDE
     Route: 065
  173. MINOCYCLINE HYDROCHLORIDE [Suspect]
     Active Substance: MINOCYCLINE HYDROCHLORIDE
     Indication: Rheumatoid arthritis
     Route: 065
  174. MINOCYCLINE HYDROCHLORIDE [Suspect]
     Active Substance: MINOCYCLINE HYDROCHLORIDE
     Route: 065
  175. MINOCYCLINE HYDROCHLORIDE [Suspect]
     Active Substance: MINOCYCLINE HYDROCHLORIDE
     Route: 041
  176. MINOCYCLINE HYDROCHLORIDE [Suspect]
     Active Substance: MINOCYCLINE HYDROCHLORIDE
     Route: 065
  177. MINOCYCLINE HYDROCHLORIDE [Suspect]
     Active Substance: MINOCYCLINE HYDROCHLORIDE
     Route: 065
  178. MYOCHRYSINE [Suspect]
     Active Substance: GOLD SODIUM THIOMALATE
     Indication: Rheumatoid arthritis
     Route: 030
  179. MYRBETRIQ [Suspect]
     Active Substance: MIRABEGRON
     Dosage: 1 DF, Q24H
     Route: 065
  180. MYRBETRIQ [Suspect]
     Active Substance: MIRABEGRON
     Indication: Product used for unknown indication
     Route: 065
  181. NAPROXEN [Suspect]
     Active Substance: NAPROXEN
     Indication: Product used for unknown indication
     Route: 065
  182. NAPROXEN [Suspect]
     Active Substance: NAPROXEN
     Indication: Rheumatoid arthritis
     Dosage: 500 MG, Q24H
     Route: 065
  183. NAPROXEN [Suspect]
     Active Substance: NAPROXEN
     Route: 065
  184. NAPROXEN [Suspect]
     Active Substance: NAPROXEN
     Route: 065
  185. NAPROXEN SODIUM [Suspect]
     Active Substance: NAPROXEN SODIUM
     Indication: Rheumatoid arthritis
     Route: 065
  186. NEOMYCIN SULFATE [Suspect]
     Active Substance: NEOMYCIN SULFATE
     Indication: Rheumatoid arthritis
     Route: 065
  187. NUCALA [Suspect]
     Active Substance: MEPOLIZUMAB
     Indication: Product used for unknown indication
     Route: 065
  188. OXYCODONE [Suspect]
     Active Substance: OXYCODONE
     Indication: Product used for unknown indication
     Route: 065
  189. ORENCIA [Suspect]
     Active Substance: ABATACEPT
     Dosage: 1250 MG, QW
     Route: 058
  190. ORENCIA [Suspect]
     Active Substance: ABATACEPT
     Route: 065
  191. ORENCIA [Suspect]
     Active Substance: ABATACEPT
     Route: 065
  192. ORENCIA [Suspect]
     Active Substance: ABATACEPT
     Route: 042
  193. ORENCIA [Suspect]
     Active Substance: ABATACEPT
     Indication: Rheumatoid arthritis
     Route: 065
  194. ORENCIA [Suspect]
     Active Substance: ABATACEPT
     Route: 065
  195. ORENCIA [Suspect]
     Active Substance: ABATACEPT
     Route: 040
  196. ORENCIA [Suspect]
     Active Substance: ABATACEPT
     Route: 058
  197. ORENCIA [Suspect]
     Active Substance: ABATACEPT
     Route: 065
  198. OXYCODONE TEREPHTHALATE [Suspect]
     Active Substance: OXYCODONE TEREPHTHALATE
     Indication: Product used for unknown indication
     Route: 065
  199. PHENYLEPHRINE HYDROCHLORIDE [Suspect]
     Active Substance: PHENYLEPHRINE HYDROCHLORIDE
     Indication: Rheumatoid arthritis
     Route: 065
  200. PERIOGARD [Suspect]
     Active Substance: CHLORHEXIDINE GLUCONATE
     Indication: Product used for unknown indication
     Route: 061
  201. PHTHALYLSULFATHIAZOLE [Suspect]
     Active Substance: PHTHALYLSULFATHIAZOLE
     Dosage: 2000 MG, QD
     Route: 048
  202. PHTHALYLSULFATHIAZOLE [Suspect]
     Active Substance: PHTHALYLSULFATHIAZOLE
     Route: 048
  203. PHTHALYLSULFATHIAZOLE [Suspect]
     Active Substance: PHTHALYLSULFATHIAZOLE
     Route: 042
  204. PHTHALYLSULFATHIAZOLE [Suspect]
     Active Substance: PHTHALYLSULFATHIAZOLE
     Indication: Rheumatoid arthritis
     Route: 058
  205. PSEUDOEPHEDRINE HYDROCHLORIDE [Suspect]
     Active Substance: PSEUDOEPHEDRINE HYDROCHLORIDE
     Indication: Rheumatoid arthritis
     Route: 065
  206. PSEUDOEPHEDRINE HYDROCHLORIDE [Suspect]
     Active Substance: PSEUDOEPHEDRINE HYDROCHLORIDE
     Route: 065
  207. PSEUDOEPHEDRINE HYDROCHLORIDE [Suspect]
     Active Substance: PSEUDOEPHEDRINE HYDROCHLORIDE
     Route: 065
  208. PSEUDOEPHEDRINE HYDROCHLORIDE [Suspect]
     Active Substance: PSEUDOEPHEDRINE HYDROCHLORIDE
     Route: 065
  209. RITUXIMAB [Suspect]
     Active Substance: RITUXIMAB
     Dosage: 1000 MG, Q12H
     Route: 065
  210. RITUXIMAB [Suspect]
     Active Substance: RITUXIMAB
     Dosage: 1 G, BID
     Route: 041
  211. RITUXIMAB [Suspect]
     Active Substance: RITUXIMAB
     Dosage: 1 G, BID
     Route: 041
  212. RITUXIMAB [Suspect]
     Active Substance: RITUXIMAB
     Dosage: 1000 MG, BID
     Route: 065
  213. RITUXIMAB [Suspect]
     Active Substance: RITUXIMAB
     Dosage: 2000 MG, QD
     Route: 065
  214. RITUXIMAB [Suspect]
     Active Substance: RITUXIMAB
     Dosage: 2000 MG, QD
     Route: 065
  215. RITUXIMAB [Suspect]
     Active Substance: RITUXIMAB
     Dosage: 2000 MG, Q24H
     Route: 065
  216. RITUXIMAB [Suspect]
     Active Substance: RITUXIMAB
     Route: 041
  217. RITUXIMAB [Suspect]
     Active Substance: RITUXIMAB
     Indication: Rheumatoid arthritis
     Route: 065
  218. RITUXIMAB [Suspect]
     Active Substance: RITUXIMAB
     Route: 016
  219. RITUXIMAB [Suspect]
     Active Substance: RITUXIMAB
     Route: 016
  220. RITUXIMAB [Suspect]
     Active Substance: RITUXIMAB
     Route: 016
  221. RITUXIMAB [Suspect]
     Active Substance: RITUXIMAB
     Route: 041
  222. RITUXIMAB [Suspect]
     Active Substance: RITUXIMAB
     Route: 041
  223. RITUXIMAB [Suspect]
     Active Substance: RITUXIMAB
     Route: 041
  224. RITUXIMAB [Suspect]
     Active Substance: RITUXIMAB
     Route: 041
  225. RITUXIMAB [Suspect]
     Active Substance: RITUXIMAB
     Route: 042
  226. RITUXIMAB [Suspect]
     Active Substance: RITUXIMAB
     Route: 043
  227. RITUXIMAB [Suspect]
     Active Substance: RITUXIMAB
     Route: 043
  228. RITUXIMAB [Suspect]
     Active Substance: RITUXIMAB
     Route: 058
  229. RITUXIMAB [Suspect]
     Active Substance: RITUXIMAB
     Route: 059
  230. RITUXIMAB [Suspect]
     Active Substance: RITUXIMAB
     Route: 059
  231. RAMIPRIL [Suspect]
     Active Substance: RAMIPRIL
     Route: 016
  232. RAMIPRIL [Suspect]
     Active Substance: RAMIPRIL
     Route: 042
  233. RAMIPRIL [Suspect]
     Active Substance: RAMIPRIL
     Indication: Rheumatoid arthritis
     Route: 065
  234. RANITIDINE HYDROCHLORIDE [Suspect]
     Active Substance: RANITIDINE HYDROCHLORIDE
     Indication: Product used for unknown indication
     Route: 065
  235. CETIRIZINE HYDROCHLORIDE\PSEUDOEPHEDRINE HYDROCHLORIDE [Suspect]
     Active Substance: CETIRIZINE HYDROCHLORIDE\PSEUDOEPHEDRINE HYDROCHLORIDE
     Route: 065
  236. CETIRIZINE HYDROCHLORIDE\PSEUDOEPHEDRINE HYDROCHLORIDE [Suspect]
     Active Substance: CETIRIZINE HYDROCHLORIDE\PSEUDOEPHEDRINE HYDROCHLORIDE
     Route: 065
  237. CETIRIZINE HYDROCHLORIDE\PSEUDOEPHEDRINE HYDROCHLORIDE [Suspect]
     Active Substance: CETIRIZINE HYDROCHLORIDE\PSEUDOEPHEDRINE HYDROCHLORIDE
     Indication: Rheumatoid arthritis
     Route: 065
  238. REMICADE [Suspect]
     Active Substance: INFLIXIMAB
     Dosage: 500 MG, QD
     Route: 042
  239. REMICADE [Suspect]
     Active Substance: INFLIXIMAB
     Route: 042
  240. REMICADE [Suspect]
     Active Substance: INFLIXIMAB
     Route: 042
  241. REMICADE [Suspect]
     Active Substance: INFLIXIMAB
     Indication: Rheumatoid arthritis
     Route: 058
  242. RIBOFLAVIN [Suspect]
     Active Substance: RIBOFLAVIN
     Indication: Product used for unknown indication
     Route: 065
  243. HYDROCORTISONE [Suspect]
     Active Substance: HYDROCORTISONE
     Indication: Product used for unknown indication
     Route: 065
  244. SULFASALAZINE [Suspect]
     Active Substance: SULFASALAZINE
     Dosage: 1 G, QD
     Route: 065
  245. SULFASALAZINE [Suspect]
     Active Substance: SULFASALAZINE
     Route: 048
  246. SULFASALAZINE [Suspect]
     Active Substance: SULFASALAZINE
     Dosage: 2 G, QD
     Route: 065
  247. SULFASALAZINE [Suspect]
     Active Substance: SULFASALAZINE
     Dosage: 2 DF, QD
     Route: 048
  248. SULFASALAZINE [Suspect]
     Active Substance: SULFASALAZINE
     Dosage: 2000 MG, QD
     Route: 048
  249. SULFASALAZINE [Suspect]
     Active Substance: SULFASALAZINE
     Dosage: 300 MG, QD
     Route: 065
  250. SULFASALAZINE [Suspect]
     Active Substance: SULFASALAZINE
     Dosage: 4 G, QD
     Route: 058
  251. SULFASALAZINE [Suspect]
     Active Substance: SULFASALAZINE
     Route: 048
  252. SULFASALAZINE [Suspect]
     Active Substance: SULFASALAZINE
     Route: 048
  253. SULFASALAZINE [Suspect]
     Active Substance: SULFASALAZINE
     Indication: Rheumatoid arthritis
     Route: 048
  254. SULFASALAZINE [Suspect]
     Active Substance: SULFASALAZINE
     Route: 048
  255. SULFASALAZINE [Suspect]
     Active Substance: SULFASALAZINE
     Route: 058
  256. SIMPONI [Suspect]
     Active Substance: GOLIMUMAB
     Route: 065
  257. SIMPONI [Suspect]
     Active Substance: GOLIMUMAB
     Indication: Rheumatoid arthritis
     Route: 058
  258. SIMPONI [Suspect]
     Active Substance: GOLIMUMAB
     Route: 058
  259. SIRUKUMAB [Suspect]
     Active Substance: SIRUKUMAB
     Indication: Product used for unknown indication
     Route: 065
  260. GOLD SODIUM THIOMALATE [Suspect]
     Active Substance: GOLD SODIUM THIOMALATE
     Route: 065
  261. GOLD SODIUM THIOMALATE [Suspect]
     Active Substance: GOLD SODIUM THIOMALATE
     Route: 059
  262. GOLD SODIUM THIOMALATE [Suspect]
     Active Substance: GOLD SODIUM THIOMALATE
     Route: 041
  263. GOLD SODIUM THIOMALATE [Suspect]
     Active Substance: GOLD SODIUM THIOMALATE
     Route: 065
  264. GOLD SODIUM THIOMALATE [Suspect]
     Active Substance: GOLD SODIUM THIOMALATE
     Indication: Rheumatoid arthritis
     Route: 041
  265. GOLD SODIUM THIOMALATE [Suspect]
     Active Substance: GOLD SODIUM THIOMALATE
     Route: 059
  266. GOLD SODIUM THIOMALATE [Suspect]
     Active Substance: GOLD SODIUM THIOMALATE
     Route: 065
  267. STELARA [Suspect]
     Active Substance: USTEKINUMAB
     Indication: Rheumatoid arthritis
     Route: 058
  268. SULFAMETHOXAZOLE [Suspect]
     Active Substance: SULFAMETHOXAZOLE
     Indication: Product used for unknown indication
     Route: 065
  269. SULFAMETHOXAZOLE\TRIMETHOPRIM [Suspect]
     Active Substance: SULFAMETHOXAZOLE\TRIMETHOPRIM
     Indication: Product used for unknown indication
     Route: 065
  270. SULFASALAZINE [Suspect]
     Active Substance: SULFASALAZINE
     Dosage: 1 G, Q24H
     Route: 058
  271. SULFASALAZINE [Suspect]
     Active Substance: SULFASALAZINE
     Dosage: 1 G, Q24H
     Route: 065
  272. SULFASALAZINE [Suspect]
     Active Substance: SULFASALAZINE
     Dosage: 1 DF, Q12H
     Route: 048
  273. SULFASALAZINE [Suspect]
     Active Substance: SULFASALAZINE
     Route: 048
  274. SULFASALAZINE [Suspect]
     Active Substance: SULFASALAZINE
     Route: 048
  275. SULFASALAZINE [Suspect]
     Active Substance: SULFASALAZINE
     Dosage: 1000 MG, Q12H
     Route: 048
  276. SULFASALAZINE [Suspect]
     Active Substance: SULFASALAZINE
     Dosage: 2 G, Q24H
     Route: 065
  277. SULFASALAZINE [Suspect]
     Active Substance: SULFASALAZINE
     Dosage: 300 MG, Q24H
     Route: 065
  278. SULFASALAZINE [Suspect]
     Active Substance: SULFASALAZINE
     Route: 048
  279. SULFASALAZINE [Suspect]
     Active Substance: SULFASALAZINE
     Dosage: UNK, Q24H
     Route: 048
  280. SULFASALAZINE [Suspect]
     Active Substance: SULFASALAZINE
     Route: 048
  281. SULFASALAZINE [Suspect]
     Active Substance: SULFASALAZINE
     Indication: Rheumatoid arthritis
     Route: 058
  282. THIAMINE HYDROCHLORIDE [Suspect]
     Active Substance: THIAMINE HYDROCHLORIDE
     Indication: Product used for unknown indication
     Route: 065
  283. TOCILIZUMAB [Suspect]
     Active Substance: TOCILIZUMAB
     Dosage: 10 MG, QD
     Route: 048
  284. TOCILIZUMAB [Suspect]
     Active Substance: TOCILIZUMAB
     Dosage: 10 MG, QD
     Route: 065
  285. TOCILIZUMAB [Suspect]
     Active Substance: TOCILIZUMAB
     Route: 065
  286. TOCILIZUMAB [Suspect]
     Active Substance: TOCILIZUMAB
     Indication: Rheumatoid arthritis
     Route: 065
  287. TOCILIZUMAB [Suspect]
     Active Substance: TOCILIZUMAB
     Route: 058
  288. TOCILIZUMAB [Suspect]
     Active Substance: TOCILIZUMAB
     Route: 040
  289. TOCILIZUMAB [Suspect]
     Active Substance: TOCILIZUMAB
     Route: 040
  290. TOCILIZUMAB [Suspect]
     Active Substance: TOCILIZUMAB
     Route: 058
  291. TOFACITINIB CITRATE [Suspect]
     Active Substance: TOFACITINIB CITRATE
     Dosage: 10 MG, Q24H
     Route: 065
  292. TOFACITINIB CITRATE [Suspect]
     Active Substance: TOFACITINIB CITRATE
     Indication: Rheumatoid arthritis
     Dosage: 5 MG, Q12H
     Route: 065
  293. TOPIRAMATE [Suspect]
     Active Substance: TOPIRAMATE
     Dosage: 25 MG, Q24H
     Route: 065
  294. TOPIRAMATE [Suspect]
     Active Substance: TOPIRAMATE
     Indication: Migraine
     Dosage: 3 MG, Q24H
     Route: 065
  295. TRAMADOL HYDROCHLORIDE [Suspect]
     Active Substance: TRAMADOL HYDROCHLORIDE
     Indication: Product used for unknown indication
     Route: 065
  296. TRIAMCINOLONE ACETONIDE [Suspect]
     Active Substance: TRIAMCINOLONE ACETONIDE
     Indication: Rheumatoid arthritis
     Route: 014
  297. USTEKINUMAB [Suspect]
     Active Substance: USTEKINUMAB
     Indication: Product used for unknown indication
     Route: 065
  298. USTEKINUMAB [Suspect]
     Active Substance: USTEKINUMAB
     Route: 058
  299. VITAMIN A [Suspect]
     Active Substance: VITAMIN A
     Indication: Product used for unknown indication
     Route: 065
  300. VITAMIN C [Suspect]
     Active Substance: ASCORBIC ACID
     Indication: Product used for unknown indication
     Route: 065
  301. VITAMIN D3 [Suspect]
     Active Substance: CHOLECALCIFEROL
     Indication: Product used for unknown indication
     Route: 065
  302. XELJANZ [Suspect]
     Active Substance: TOFACITINIB CITRATE
     Dosage: 10 MG, QD
     Route: 065
  303. XELJANZ [Suspect]
     Active Substance: TOFACITINIB CITRATE
     Route: 048
  304. XELJANZ [Suspect]
     Active Substance: TOFACITINIB CITRATE
     Dosage: 20 MG, QD
     Route: 048
  305. XELJANZ [Suspect]
     Active Substance: TOFACITINIB CITRATE
     Indication: Rheumatoid arthritis
     Route: 065
  306. DESOGESTREL AND ETHINYL ESTRADIOL [Concomitant]
     Active Substance: DESOGESTREL\ETHINYL ESTRADIOL
     Indication: Product used for unknown indication
     Route: 065
  307. DESOGESTREL AND ETHINYL ESTRADIOL [Concomitant]
     Active Substance: DESOGESTREL\ETHINYL ESTRADIOL
     Route: 065

REACTIONS (92)
  - C-reactive protein abnormal [Fatal]
  - C-reactive protein increased [Fatal]
  - Confusional state [Fatal]
  - Drug hypersensitivity [Fatal]
  - Infusion related reaction [Fatal]
  - Injection site reaction [Fatal]
  - Nausea [Fatal]
  - Onychomadesis [Fatal]
  - Onychomycosis [Fatal]
  - Pain [Fatal]
  - Pemphigus [Fatal]
  - Pericarditis [Fatal]
  - Psoriatic arthropathy [Fatal]
  - Rash [Fatal]
  - Rheumatic fever [Fatal]
  - Rheumatoid arthritis [Fatal]
  - Sleep disorder [Fatal]
  - Swelling [Fatal]
  - Synovitis [Fatal]
  - Systemic lupus erythematosus [Fatal]
  - Type 2 diabetes mellitus [Fatal]
  - Wound [Fatal]
  - Ill-defined disorder [Fatal]
  - Dyspnoea [Fatal]
  - Abdominal discomfort [Fatal]
  - Abdominal distension [Fatal]
  - Adverse reaction [Fatal]
  - Alopecia [Fatal]
  - Anti-cyclic citrullinated peptide antibody positive [Fatal]
  - Arthralgia [Fatal]
  - Arthropathy [Fatal]
  - Blood cholesterol increased [Fatal]
  - Bursitis [Fatal]
  - Coeliac disease [Fatal]
  - Condition aggravated [Fatal]
  - Decreased appetite [Fatal]
  - Drug intolerance [Fatal]
  - Drug-induced liver injury [Fatal]
  - Dyspepsia [Fatal]
  - Folliculitis [Fatal]
  - Gastrointestinal disorder [Fatal]
  - Gastrooesophageal reflux disease [Fatal]
  - General physical health deterioration [Fatal]
  - Glossodynia [Fatal]
  - Grip strength decreased [Fatal]
  - Hand deformity [Fatal]
  - Headache [Fatal]
  - Hepatic enzyme increased [Fatal]
  - Hypersensitivity [Fatal]
  - Hypertension [Fatal]
  - Hypoaesthesia [Fatal]
  - Inflammation [Fatal]
  - Insomnia [Fatal]
  - Irritable bowel syndrome [Fatal]
  - Live birth [Fatal]
  - Malaise [Fatal]
  - Mobility decreased [Fatal]
  - Musculoskeletal stiffness [Fatal]
  - Nail disorder [Fatal]
  - Abdominal pain upper [Fatal]
  - Vomiting [Fatal]
  - Migraine [Fatal]
  - Memory impairment [Fatal]
  - Lung disorder [Fatal]
  - Lower respiratory tract infection [Fatal]
  - Liver injury [Fatal]
  - Joint swelling [Fatal]
  - Joint range of motion decreased [Fatal]
  - Impaired healing [Fatal]
  - Helicobacter infection [Fatal]
  - Dizziness [Fatal]
  - Diarrhoea [Fatal]
  - Depression [Fatal]
  - Breast cancer stage III [Fatal]
  - Blepharospasm [Fatal]
  - Asthenia [Fatal]
  - Blister [Fatal]
  - Lip dry [Fatal]
  - Epilepsy [Fatal]
  - Fatigue [Fatal]
  - Fibromyalgia [Fatal]
  - Product label confusion [Fatal]
  - Product use issue [Fatal]
  - Off label use [Fatal]
  - Contraindicated product administered [Fatal]
  - Product use in unapproved indication [Fatal]
  - Treatment failure [Fatal]
  - Therapeutic product effect decreased [Fatal]
  - Therapeutic product effect incomplete [Fatal]
  - Drug ineffective [Fatal]
  - Maternal exposure during pregnancy [Fatal]
  - Exposure during pregnancy [Fatal]
